FAERS Safety Report 9001516 (Version 2)
Quarter: 2013Q1

REPORT INFORMATION
  Report Type: Spontaneous
  Country: IT (occurrence: IT)
  Receive Date: 20130107
  Receipt Date: 20130131
  Transmission Date: 20140127
  Serious: Yes (Other)
  Sender: FDA-Public Use
  Company Number: IT-PFIZER INC-2013003310

PATIENT
  Age: 57 Year
  Sex: Male

DRUGS (5)
  1. CHAMPIX [Suspect]
     Indication: SMOKING CESSATION THERAPY
     Dosage: 1 MG, DAILY
  2. ATENOLOL [Concomitant]
     Dosage: UNK
     Dates: start: 2008
  3. TORVAST [Concomitant]
     Dosage: UNK
  4. ESKIM [Concomitant]
     Dosage: UNK
  5. ZOLOFT [Concomitant]
     Dosage: UNK

REACTIONS (1)
  - Visual acuity reduced [Recovered/Resolved]
